FAERS Safety Report 13670974 (Version 1)
Quarter: 2017Q2

REPORT INFORMATION
  Report Type: Spontaneous
  Country: US (occurrence: US)
  Receive Date: 20170620
  Receipt Date: 20170620
  Transmission Date: 20170830
  Serious: No
  Sender: FDA-Public Use
  Company Number: US-ROCHE-1551294

PATIENT
  Sex: Female

DRUGS (9)
  1. LISINOPRIL. [Concomitant]
     Active Substance: LISINOPRIL
  2. XELODA [Suspect]
     Active Substance: CAPECITABINE
     Route: 048
  3. FISH OIL [Concomitant]
     Active Substance: FISH OIL
  4. PEPCID [Concomitant]
     Active Substance: FAMOTIDINE
  5. FOLIC ACID. [Concomitant]
     Active Substance: FOLIC ACID
  6. CRESTOR [Concomitant]
     Active Substance: ROSUVASTATIN CALCIUM
  7. ALPRAZOLAM. [Concomitant]
     Active Substance: ALPRAZOLAM
  8. COREG [Concomitant]
     Active Substance: CARVEDILOL
  9. XELODA [Suspect]
     Active Substance: CAPECITABINE
     Indication: BREAST CANCER
     Route: 048
     Dates: start: 20150219

REACTIONS (1)
  - Rash [Unknown]
